FAERS Safety Report 9183300 (Version 1)
Quarter: 2012Q4

REPORT INFORMATION
  Report Type: 
  Country: BR (occurrence: BR)
  Receive Date: 20121030
  Receipt Date: 20121030
  Transmission Date: 20130627
  Serious: Yes (Other)
  Sender: FDA-Public Use
  Company Number: PHHY2012BR097420

PATIENT
  Age: 61 None
  Sex: Female
  Weight: 79 kg

DRUGS (4)
  1. DIOVAN HCT [Suspect]
     Indication: BLOOD PRESSURE ABNORMAL
     Dosage: 1 DF, 1 tablet (valsartan 160mg and hydrochlorothiazide 12.5mg) per day
     Route: 048
  2. ROSUVASTATIN CALCIUM [Concomitant]
     Indication: BLOOD CHOLESTEROL INCREASED
     Dosage: 1 tablet on Monday, Wednesday and Friday
     Route: 048
  3. OMEGA 3 [Concomitant]
     Dosage: 2 DF, 2 capsules daily
     Route: 048
  4. GLIFAGE [Concomitant]
     Indication: DIABETES MELLITUS
     Dosage: 1 DF,1 tablet per day
     Route: 048

REACTIONS (3)
  - Uterine haemorrhage [Not Recovered/Not Resolved]
  - Blood urine present [Not Recovered/Not Resolved]
  - Uterine polyp [Not Recovered/Not Resolved]
